FAERS Safety Report 17041676 (Version 1)
Quarter: 2019Q4

REPORT INFORMATION
  Report Type: Spontaneous
  Country: FR (occurrence: FR)
  Receive Date: 20191118
  Receipt Date: 20191118
  Transmission Date: 20200122
  Serious: Yes (Hospitalization, Other)
  Sender: FDA-Public Use
  Company Number: FR-BRISTOL-MYERS SQUIBB COMPANY-BMS-2019-107651

PATIENT
  Age: 56 Year
  Sex: Female

DRUGS (5)
  1. TOCILIZUMAB. [Suspect]
     Active Substance: TOCILIZUMAB
     Indication: ANTISYNTHETASE SYNDROME
     Dosage: 560 MILLIGRAM, QMO
     Route: 065
  2. METHOTREXATE. [Suspect]
     Active Substance: METHOTREXATE
     Indication: ANTISYNTHETASE SYNDROME
     Dosage: 20 MILLIGRAM, QWK
     Route: 065
  3. TRIAMCINOLONE ACETONIDE. [Suspect]
     Active Substance: TRIAMCINOLONE ACETONIDE
     Indication: TENOSYNOVITIS
     Dosage: 2 DOSAGE FORM
     Route: 014
  4. PREDNISONE. [Suspect]
     Active Substance: PREDNISONE
     Indication: ANTISYNTHETASE SYNDROME
     Dosage: 10 MILLIGRAM, QD
     Route: 065
  5. TRIAMCINOLONE ACETONIDE. [Suspect]
     Active Substance: TRIAMCINOLONE ACETONIDE
     Indication: SYNOVITIS
     Route: 065

REACTIONS (4)
  - Legionella infection [Recovered/Resolved]
  - Cellulitis [Recovered/Resolved]
  - Lymphadenopathy [Recovered/Resolved]
  - Arthritis bacterial [Recovered/Resolved]
